FAERS Safety Report 15435143 (Version 1)
Quarter: 2018Q3

REPORT INFORMATION
  Report Type: Spontaneous
  Country: US (occurrence: US)
  Receive Date: 20180927
  Receipt Date: 20180927
  Transmission Date: 20181010
  Serious: No
  Sender: FDA-Public Use
  Company Number: US-ARALEZ PHARMACEUTICALS R+D INC.-2018-ARA-002401

PATIENT
  Age: 43 Year
  Sex: Male
  Weight: 83.9 kg

DRUGS (7)
  1. LISINOPRIL. [Concomitant]
     Active Substance: LISINOPRIL
     Indication: BLOOD PRESSURE MANAGEMENT
     Dosage: 30 MG, QD
     Route: 048
     Dates: start: 200911
  2. METOPROLOL SUCCINATE. [Suspect]
     Active Substance: METOPROLOL SUCCINATE
     Indication: BLOOD PRESSURE MANAGEMENT
     Dosage: 50 MG, CAN TAKE UP TO THREE TIMES DEPENDING ON HIS BLOOD PRESSURE
     Route: 048
     Dates: start: 200911
  3. CRESTOR [Concomitant]
     Active Substance: ROSUVASTATIN CALCIUM
     Indication: BLOOD CHOLESTEROL INCREASED
     Dosage: 10 MG, QD
     Route: 048
     Dates: start: 2009, end: 201103
  4. FENTANYL. [Concomitant]
     Active Substance: FENTANYL
     Indication: PAIN
     Dosage: UNK
  5. TESTOSTERONE CYPIONATE. [Concomitant]
     Active Substance: TESTOSTERONE CYPIONATE
     Indication: HORMONE THERAPY
     Dosage: 2 MG, EVERY 2 WEEKS
     Route: 030
  6. PLAVIX [Concomitant]
     Active Substance: CLOPIDOGREL BISULFATE
     Indication: STENT PLACEMENT
     Dosage: UNK
     Route: 048
     Dates: start: 200911
  7. VICODIN [Concomitant]
     Active Substance: ACETAMINOPHEN\HYDROCODONE BITARTRATE
     Indication: PAIN
     Dosage: UNK

REACTIONS (1)
  - Inappropriate schedule of drug administration [Not Recovered/Not Resolved]

NARRATIVE: CASE EVENT DATE: 200911
